FAERS Safety Report 10554620 (Version 3)
Quarter: 2014Q4

REPORT INFORMATION
  Report Type: Spontaneous
  Country: JP (occurrence: JP)
  Receive Date: 20141030
  Receipt Date: 20141117
  Transmission Date: 20150529
  Serious: Yes (Death, Other)
  Sender: FDA-Public Use
  Company Number: PHHY2014JP134038

PATIENT
  Age: 75 Year
  Sex: Male

DRUGS (2)
  1. SANDIMMUNE [Suspect]
     Active Substance: CYCLOSPORINE
     Indication: INTERSTITIAL LUNG DISEASE
     Dosage: 100 MG, QD
     Route: 042
     Dates: start: 20140926
  2. SANDIMMUNE [Suspect]
     Active Substance: CYCLOSPORINE
     Indication: OFF LABEL USE
     Dosage: 80 MG, QD
     Route: 042
     Dates: start: 20140929, end: 20141008

REACTIONS (3)
  - Liver disorder [Unknown]
  - Interstitial lung disease [Fatal]
  - Drug clearance decreased [Unknown]

NARRATIVE: CASE EVENT DATE: 20141020
